FAERS Safety Report 5484682-1 (Version None)
Quarter: 2007Q4

REPORT INFORMATION
  Report Type: 
  Country: None (occurrence: None)
  Receive Date: 20071012
  Receipt Date: 20071005
  Transmission Date: 20080405
  Serious: Yes (Other)
  Sender: FDA-Public Use
  Company Number: AT-PFIZER INC-2007083190

PATIENT
  Sex: Female

DRUGS (3)
  1. DEPOCON [Suspect]
     Indication: CONTRACEPTION
     Route: 030
     Dates: start: 20070302, end: 20070302
  2. DEPOCON [Suspect]
     Route: 030
     Dates: start: 20070529, end: 20070529
  3. DEPOCON [Suspect]
     Route: 030
     Dates: start: 20070829, end: 20070829

REACTIONS (3)
  - CHLAMYDIAL INFECTION [None]
  - DRUG INEFFECTIVE [None]
  - UNINTENDED PREGNANCY [None]
